FAERS Safety Report 6181799-3 (Version None)
Quarter: 2009Q2

REPORT INFORMATION
  Report Type: 
  Country: None (occurrence: None)
  Receive Date: 20090506
  Receipt Date: 20090425
  Transmission Date: 20091009
  Serious: Yes (Other)
  Sender: FDA-Public Use
  Company Number: PHHY2009BR15468

PATIENT
  Age: 81 Year
  Sex: Male
  Weight: 70 kg

DRUGS (9)
  1. EXELON [Suspect]
     Indication: DEMENTIA ALZHEIMER'S TYPE
     Dosage: 9MG/5CM2
     Route: 062
     Dates: start: 20090423, end: 20090424
  2. EXELON [Suspect]
     Dosage: 9MG/5CM2
     Route: 062
     Dates: start: 20090426
  3. CAPTOPRIL [Concomitant]
     Indication: HYPERTENSION
     Dosage: 3 DF, PER DAY
     Route: 048
  4. ALDOMET [Concomitant]
     Indication: HYPERTENSION
     Dosage: 3 DF PER DAY
     Route: 048
  5. INDAPEN [Concomitant]
     Indication: HYPERTENSION
     Dosage: 1 TABLET/DAY
     Route: 048
  6. CITALOPRAM HYDROBROMIDE [Concomitant]
     Indication: DEPRESSION
     Dosage: 1 DF, DAILY
     Route: 048
  7. ANCORON [Concomitant]
     Indication: BRADYCARDIA
     Dosage: 100 MG, QD
     Route: 048
     Dates: end: 20090425
  8. ANCORON [Concomitant]
     Indication: HEART RATE IRREGULAR
  9. AMLODIPINE BESYLATE [Concomitant]
     Indication: HYPERTENSION
     Dosage: 10 MG, QD
     Route: 048

REACTIONS (5)
  - AGGRESSION [None]
  - BRADYCARDIA [None]
  - CONFUSIONAL STATE [None]
  - DIZZINESS [None]
  - HYPERTENSION [None]
